FAERS Safety Report 19958492 (Version 2)
Quarter: 2021Q4

REPORT INFORMATION
  Report Type: Spontaneous
  Country: JP (occurrence: JP)
  Receive Date: 20211015
  Receipt Date: 20211019
  Transmission Date: 20220304
  Serious: Yes (Other)
  Sender: FDA-Public Use
  Company Number: JP-SA-2021SA335923

PATIENT
  Age: 50 Year
  Sex: Female

DRUGS (1)
  1. DOCETAXEL [Suspect]
     Active Substance: DOCETAXEL
     Indication: Breast cancer
     Route: 065

REACTIONS (6)
  - Lymphoedema [Unknown]
  - Sclerema [Unknown]
  - Joint contracture [Unknown]
  - Motor dysfunction [Recovering/Resolving]
  - Oedema peripheral [Unknown]
  - Generalised oedema [Unknown]
